FAERS Safety Report 10833497 (Version 2)
Quarter: 2015Q2

REPORT INFORMATION
  Report Type: Report from Study
  Country: US (occurrence: US)
  Receive Date: 20150219
  Receipt Date: 20150624
  Transmission Date: 20150821
  Serious: Yes (Hospitalization, Other)
  Sender: FDA-Public Use
  Company Number: US-GILEAD-2015-0137755

PATIENT
  Age: 61 Year
  Sex: Male

DRUGS (1)
  1. RANOLAZINE [Suspect]
     Active Substance: RANOLAZINE
     Indication: CORONARY ARTERY DISEASE
     Dosage: 500 MG, UNK
     Route: 048

REACTIONS (11)
  - Coronary artery bypass [Unknown]
  - Myocardial infarction [Unknown]
  - Cardiac pacemaker insertion [Unknown]
  - Chronic obstructive pulmonary disease [Unknown]
  - Cardiac failure congestive [Unknown]
  - Cardiac operation [Unknown]
  - Angioplasty [Unknown]
  - Arterial occlusive disease [Unknown]
  - Cardiac pacemaker replacement [Unknown]
  - Stent placement [Unknown]
  - Coronary artery disease [Unknown]
